FAERS Safety Report 22638635 (Version 1)
Quarter: 2023Q2

REPORT INFORMATION
  Report Type: Spontaneous
  Country: CN (occurrence: CN)
  Receive Date: 20230626
  Receipt Date: 20230626
  Transmission Date: 20230721
  Serious: Yes (Other)
  Sender: FDA-Public Use
  Company Number: CN-TOLMAR, INC.-23CN041562

PATIENT
  Age: 72 Year
  Sex: Male

DRUGS (4)
  1. JATENZO [Suspect]
     Active Substance: TESTOSTERONE UNDECANOATE
     Indication: Large granular lymphocytosis
     Dosage: 80 MILLIGRAM, BID
     Route: 048
  2. JATENZO [Suspect]
     Active Substance: TESTOSTERONE UNDECANOATE
     Indication: Aplasia pure red cell
  3. CYCLOSPORINE [Concomitant]
     Active Substance: CYCLOSPORINE
     Indication: Large granular lymphocytosis
  4. CYCLOSPORINE [Concomitant]
     Active Substance: CYCLOSPORINE
     Indication: Aplasia pure red cell

REACTIONS (2)
  - Disease recurrence [Recovered/Resolved]
  - Drug effective for unapproved indication [Unknown]
